FAERS Safety Report 24114782 (Version 1)
Quarter: 2024Q3

REPORT INFORMATION
  Report Type: Report from Study
  Country: US (occurrence: US)
  Receive Date: 20240721
  Receipt Date: 20240721
  Transmission Date: 20241017
  Serious: Yes (Hospitalization, Other)
  Sender: BAXTER
  Company Number: US-BAXTER-2024BAX021543

PATIENT
  Age: 56 Year
  Sex: Male
  Weight: 57.9 kg

DRUGS (25)
  1. CYCLOPHOSPHAMIDE [Suspect]
     Active Substance: CYCLOPHOSPHAMIDE
     Indication: Adult T-cell lymphoma/leukaemia
     Dosage: 750 MG/M2, ON DAY 1 OF 21 DAY CYCLE, FOR 4 TO 6 CYCLES, AS A PART OF BV-CHEP REGIMEN
     Route: 042
     Dates: start: 20190415, end: 20190528
  2. DOXORUBICIN [Suspect]
     Active Substance: DOXORUBICIN
     Indication: Adult T-cell lymphoma/leukaemia
     Dosage: 50 MG/M2, ON DAY 1 OF 21 DAY CYCLE, FOR 4 TO 6 CYCLES, AS A PART OF BV-CHEP REGIMEN
     Route: 042
     Dates: start: 20190415, end: 20190528
  3. BRENTUXIMAB VEDOTIN [Suspect]
     Active Substance: BRENTUXIMAB VEDOTIN
     Indication: Adult T-cell lymphoma/leukaemia
     Dosage: 1.8 MG/KG, ON DAY 1 OF 21 DAY CYCLE, FOR 4 TO 6 CYCLES, AS A PART OF BV-CHEP REGIMEN
     Route: 042
     Dates: start: 20190415, end: 20190528
  4. ETOPOSIDE [Suspect]
     Active Substance: ETOPOSIDE
     Indication: Adult T-cell lymphoma/leukaemia
     Dosage: 100 MG/M2, DAYS 1-3 OF 21 DAY CYCLE, FOR 4 TO 6 CYCLES, AS A PART OF BV-CHEP REGIMEN
     Route: 042
     Dates: start: 20190415, end: 20190530
  5. PREDNISONE [Suspect]
     Active Substance: PREDNISONE
     Indication: Adult T-cell lymphoma/leukaemia
     Dosage: 100 MG, DAYS 1-5 OF 21 DAY CYCLE, FOR 4 TO 6 CYCLES, AS A PART OF BV-CHEP REGIMEN
     Route: 048
     Dates: start: 20190415, end: 20190601
  6. ZOVIRAX [Concomitant]
     Active Substance: ACYCLOVIR
     Dosage: UNK
     Route: 048
     Dates: start: 20190514
  7. CARBOXYMETHYLCELLULOSE [Concomitant]
     Active Substance: CARBOXYMETHYLCELLULOSE
     Dosage: UNK
     Route: 047
  8. XYLOCAINE [Concomitant]
     Active Substance: LIDOCAINE HYDROCHLORIDE\LIDOCAINE HYDROCHLORIDE ANHYDROUS
     Dosage: UNK
     Route: 061
     Dates: start: 20190405
  9. PRINIVIL [Concomitant]
     Active Substance: LISINOPRIL
     Dosage: UNK
     Route: 048
  10. IMODIUM A-D [Concomitant]
     Active Substance: LOPERAMIDE HYDROCHLORIDE
     Indication: Diarrhoea
     Dosage: UNK
     Route: 048
     Dates: start: 20190508
  11. ATIVAN [Concomitant]
     Active Substance: LORAZEPAM
     Indication: Insomnia
     Dosage: UNK, ONGOING
     Route: 048
     Dates: start: 20190509
  12. ATIVAN [Concomitant]
     Active Substance: LORAZEPAM
     Indication: Nausea
  13. NARCAN [Concomitant]
     Active Substance: NALOXONE HYDROCHLORIDE
     Dosage: UNK, FORMULATION: SPRAY (EXCEPT INHALATION)
     Route: 045
     Dates: start: 20190405
  14. PRILOSEC [Concomitant]
     Active Substance: OMEPRAZOLE MAGNESIUM
     Dosage: UNK, ONGOING
     Route: 048
     Dates: start: 20190417
  15. OXYCODONE [Concomitant]
     Active Substance: OXYCODONE
     Indication: Pain
     Dosage: UNK
     Route: 048
     Dates: start: 20190405
  16. DELTASONE [Concomitant]
     Active Substance: PREDNISONE
     Dosage: UNK, ONGOING
     Route: 048
     Dates: start: 20190415
  17. COMPAZINE [Concomitant]
     Active Substance: PROCHLORPERAZINE MALEATE
     Dosage: UNK
     Route: 048
     Dates: start: 20190405
  18. ZOLOFT [Concomitant]
     Active Substance: SERTRALINE HYDROCHLORIDE
     Dosage: UNK
     Route: 048
  19. SODIUM CHLORIDE [Concomitant]
     Active Substance: SODIUM CHLORIDE
     Dosage: UNK
     Route: 047
  20. AKWA TEARS [Concomitant]
     Active Substance: POLYVINYL ALCOHOL
     Dosage: UNK
     Route: 065
  21. MEPRON [Concomitant]
     Active Substance: ATOVAQUONE
     Dosage: UNK
     Route: 048
     Dates: start: 20190514, end: 20190618
  22. FLEXERIL [Concomitant]
     Active Substance: CYCLOBENZAPRINE HYDROCHLORIDE
     Dosage: UNK
     Route: 048
     Dates: end: 20190612
  23. LIDODERM [Concomitant]
     Active Substance: LIDOCAINE
     Dosage: UNK
     Route: 062
     Dates: end: 20190612
  24. MAGNESIUM OXIDE [Concomitant]
     Active Substance: MAGNESIUM OXIDE
     Dosage: UNK
     Route: 048
     Dates: start: 20190405, end: 20190612
  25. MS CONTIN [Concomitant]
     Active Substance: MORPHINE SULFATE
     Dosage: UNK
     Route: 048
     Dates: start: 20190410, end: 20190612

REACTIONS (2)
  - Clostridium difficile infection [Recovered/Resolved]
  - Febrile neutropenia [Recovered/Resolved]

NARRATIVE: CASE EVENT DATE: 20190608
